FAERS Safety Report 26193598 (Version 1)
Quarter: 2025Q4

REPORT INFORMATION
  Report Type: Spontaneous
  Country: US (occurrence: None)
  Receive Date: 20251223
  Receipt Date: 20251223
  Transmission Date: 20260117
  Serious: Yes (Hospitalization)
  Sender: FDA-CTU
  Company Number: None

PATIENT
  Sex: Male

DRUGS (11)
  1. LENALIDOMIDE [Suspect]
     Active Substance: LENALIDOMIDE
     Indication: Plasma cell myeloma
     Dosage: TAKE 1 CAPSULE (25 MG) BY MOUTH EVERY DAY FOR 21 DAYS ON, THEN 7 DAYS OFF EACH 28 DAY CYCLE
     Route: 048
     Dates: start: 20251125
  2. ACETAMINOPHEN [Concomitant]
     Active Substance: ACETAMINOPHEN
  3. ASPIRIN [Concomitant]
     Active Substance: ASPIRIN
  4. ATORVASTATIN [Concomitant]
     Active Substance: ATORVASTATIN
  5. BENZONATATE [Concomitant]
     Active Substance: BENZONATATE
  6. DILTIAZEM [Concomitant]
     Active Substance: DILTIAZEM
  7. EPIPEN [Concomitant]
     Active Substance: EPINEPHRINE
  8. FARXIGA [Concomitant]
     Active Substance: DAPAGLIFLOZIN PROPANEDIOL
  9. FLONASE [Concomitant]
     Active Substance: FLUTICASONE PROPIONATE
  10. HYDRALAZINE [Concomitant]
     Active Substance: HYDRALAZINE HYDROCHLORIDE
  11. LATANOPROST [Concomitant]
     Active Substance: LATANOPROST

REACTIONS (7)
  - Therapy interrupted [None]
  - Fatigue [None]
  - Nausea [None]
  - Hypophagia [None]
  - Asthenia [None]
  - Dyspnoea [None]
  - Diarrhoea [None]
